FAERS Safety Report 10144893 (Version 1)
Quarter: 2014Q2

REPORT INFORMATION
  Report Type: Spontaneous
  Country: US (occurrence: US)
  Receive Date: 20140430
  Receipt Date: 20140430
  Transmission Date: 20141212
  Serious: No
  Sender: FDA-Public Use
  Company Number: US-SANOFI-AVENTIS-2013SA085669

PATIENT
  Sex: Female

DRUGS (14)
  1. DEMEROL [Suspect]
     Route: 065
  2. CELEXA [Concomitant]
     Route: 048
  3. POTASSIUM CHLORIDE [Concomitant]
     Route: 048
  4. ZANTAC [Concomitant]
     Route: 048
  5. HYDROCHLOROTHIAZIDE [Concomitant]
     Route: 048
  6. TOPROL XL [Concomitant]
     Route: 048
  7. TRAMADOL [Concomitant]
     Route: 048
  8. LYRICA [Concomitant]
     Route: 048
  9. FOLIC ACID [Concomitant]
     Route: 048
  10. METHOTREXATE [Concomitant]
     Dosage: 2.5 MG 6 TABLETS WEEKLY
     Route: 048
  11. AZULFIDINE [Concomitant]
     Route: 048
  12. LORATADINE [Concomitant]
     Route: 048
  13. FLONASE [Concomitant]
     Dosage: 0.05 MG/INH 1 SPRAY EACH NOSTRIL ONCE A DAY.
  14. CYMBALTA [Concomitant]
     Route: 048

REACTIONS (1)
  - Drug hypersensitivity [Unknown]
